FAERS Safety Report 8074678-8 (Version None)
Quarter: 2012Q1

REPORT INFORMATION
  Report Type: 
  Country: None (occurrence: None)
  Receive Date: 20120126
  Receipt Date: 20120118
  Transmission Date: 20120608
  Serious: Yes (Death, Other)
  Sender: FDA-Public Use
  Company Number: FR-BAXTER-2012BH002201

PATIENT
  Age: 86 Year
  Sex: Female

DRUGS (4)
  1. CLINIMIX N9G15E [Suspect]
     Indication: PARENTERAL NUTRITION
     Route: 058
     Dates: start: 20111214, end: 20111214
  2. CLINIMIX N9G15E [Suspect]
     Indication: OFF LABEL USE
     Route: 058
     Dates: start: 20111214, end: 20111214
  3. ANTIBIOTICS [Concomitant]
     Indication: LUNG DISORDER
     Route: 065
  4. DEXTROSE 5% [Suspect]
     Indication: PRODUCT USED FOR UNKNOWN INDICATION
     Route: 058

REACTIONS (5)
  - INCORRECT ROUTE OF DRUG ADMINISTRATION [None]
  - PAROTITIS [None]
  - LIVEDO RETICULARIS [None]
  - ACUTE PULMONARY OEDEMA [None]
  - INFUSION SITE OEDEMA [None]
